FAERS Safety Report 7902103-3 (Version None)
Quarter: 2011Q4

REPORT INFORMATION
  Report Type: 
  Country: None (occurrence: None)
  Receive Date: 20111108
  Receipt Date: 20111027
  Transmission Date: 20120403
  Serious: Yes (Hospitalization)
  Sender: FDA-Public Use
  Company Number: US-BAYER-2011-041978

PATIENT
  Age: 43 Year
  Sex: Female
  Weight: 127 kg

DRUGS (10)
  1. METFFORMIN HYDROCHLORIDE [Concomitant]
     Dosage: 875 MG, UNK
  2. METFFORMIN HYDROCHLORIDE [Concomitant]
     Indication: DIABETES MELLITUS
     Dosage: 500 MG, UNK
     Dates: start: 20071201, end: 20110401
  3. PRENATAL PLUS MULTIVITAMINS [Concomitant]
     Dosage: UNK
     Dates: start: 20090602
  4. YASMIN [Suspect]
     Dosage: UNK
     Dates: start: 20080101, end: 20080601
  5. ADVAIR DISKUS 100/50 [Concomitant]
     Dosage: UNK
     Dates: start: 20070101, end: 20080101
  6. LISINOPRIL [Concomitant]
     Dosage: UNK
     Dates: start: 20090601, end: 20110401
  7. IRON SULFATETHIAMIN COMPOUND TAB [Concomitant]
     Dosage: UNK
     Dates: start: 20090602
  8. DROSPIRENONE AND ETHINYL ESTRADIOL [Suspect]
     Dosage: UNK
     Dates: start: 20080601, end: 20090601
  9. LEVOTHYROXINE SODIUM [Concomitant]
     Dosage: UNK
     Dates: start: 20080701, end: 20110401
  10. ALPRAZOLAM [Concomitant]
     Dosage: 0.5 MG, UNK

REACTIONS (6)
  - PULMONARY EMBOLISM [None]
  - GENERAL PHYSICAL HEALTH DETERIORATION [None]
  - ANXIETY [None]
  - EMOTIONAL DISTRESS [None]
  - DYSPNOEA [None]
  - CHEST PAIN [None]
